FAERS Safety Report 10183581 (Version 2)
Quarter: 2020Q2

REPORT INFORMATION
  Report Type: Report from Study
  Country: US (occurrence: US)
  Receive Date: 20140520
  Receipt Date: 20200422
  Transmission Date: 20200713
  Serious: Yes (Hospitalization)
  Sender: FDA-Public Use
  Company Number: US-ACTELION-A-US2014-98955

PATIENT
  Age: 71 Year
  Sex: Male

DRUGS (16)
  1. LEVEMIR [Concomitant]
     Active Substance: INSULIN DETEMIR
  2. TRICOR [Concomitant]
     Active Substance: FENOFIBRATE
  3. TORSEMIDE. [Concomitant]
     Active Substance: TORSEMIDE
  4. METOPROLOL. [Concomitant]
     Active Substance: METOPROLOL
  5. ALDACTONE [Concomitant]
     Active Substance: SPIRONOLACTONE
  6. FINASTERIDE. [Concomitant]
     Active Substance: FINASTERIDE
  7. CRESTOR [Concomitant]
     Active Substance: ROSUVASTATIN CALCIUM
  8. COUMADIN [Concomitant]
     Active Substance: WARFARIN SODIUM
     Dosage: 2.5 MG, UNK
     Dates: start: 2001, end: 20140311
  9. PROTONIX [Concomitant]
     Active Substance: PANTOPRAZOLE SODIUM
  10. ZOLOFT [Concomitant]
     Active Substance: SERTRALINE HYDROCHLORIDE
  11. ASPIRIN 81 [Suspect]
     Active Substance: ASPIRIN
     Indication: CEREBROVASCULAR ACCIDENT PROPHYLAXIS
     Dosage: UNK
     Route: 048
     Dates: start: 2005
  12. XARELTO [Suspect]
     Active Substance: RIVAROXABAN
     Indication: CEREBROVASCULAR ACCIDENT PROPHYLAXIS
     Dosage: 15 MG
     Route: 048
     Dates: start: 20140324, end: 20140406
  13. FLOMAX [Concomitant]
     Active Substance: TAMSULOSIN HYDROCHLORIDE
  14. CENTRUM SILVER [Concomitant]
     Active Substance: MINERALS\VITAMINS
  15. OPSUMIT [Suspect]
     Active Substance: MACITENTAN
     Indication: PULMONARY ARTERIAL HYPERTENSION
     Dosage: 10 MG, QD
     Route: 048
     Dates: start: 20140113
  16. RESTORIL [Concomitant]
     Active Substance: TEMAZEPAM

REACTIONS (6)
  - Packed red blood cell transfusion [Recovering/Resolving]
  - Blood loss anaemia [Recovering/Resolving]
  - Coagulopathy [Recovering/Resolving]
  - Vascular rupture [Unknown]
  - Haematoma [Recovering/Resolving]
  - Transfusion [Recovering/Resolving]

NARRATIVE: CASE EVENT DATE: 20140406
